FAERS Safety Report 25009616 (Version 2)
Quarter: 2025Q2

REPORT INFORMATION
  Report Type: Spontaneous
  Country: IL (occurrence: IL)
  Receive Date: 20250225
  Receipt Date: 20250621
  Transmission Date: 20250716
  Serious: Yes (Hospitalization)
  Sender: USV PRIVATE LIMITED
  Company Number: IL-MLMSERVICE-20250206-PI397678-00336-1

PATIENT
  Age: 69 Year
  Sex: Female

DRUGS (17)
  1. ZOLEDRONIC ACID [Suspect]
     Active Substance: ZOLEDRONIC ACID
     Indication: Breast cancer metastatic
     Dates: start: 2020, end: 2022
  2. EVEROLIMUS [Suspect]
     Active Substance: EVEROLIMUS
     Indication: Breast cancer metastatic
     Dates: start: 202206, end: 2022
  3. EXEMESTANE [Concomitant]
     Active Substance: EXEMESTANE
     Indication: Breast cancer metastatic
     Dates: end: 2022
  4. HYDROXYCHLOROQUINE [Concomitant]
     Active Substance: HYDROXYCHLOROQUINE
  5. DOXAZOSIN [Concomitant]
     Active Substance: DOXAZOSIN MESYLATE
  6. HYDROCHLOROTHIAZIDE [Concomitant]
     Active Substance: HYDROCHLOROTHIAZIDE
  7. ATORVASTATIN [Concomitant]
     Active Substance: ATORVASTATIN
     Dates: end: 2022
  8. ZOLEDRONIC ACID [Suspect]
     Active Substance: ZOLEDRONIC ACID
     Indication: Metastases to the mediastinum
     Dates: start: 2020, end: 2022
  9. ZOLEDRONIC ACID [Suspect]
     Active Substance: ZOLEDRONIC ACID
     Indication: Metastases to bone
     Dates: start: 2020, end: 2022
  10. ZOLEDRONIC ACID [Suspect]
     Active Substance: ZOLEDRONIC ACID
     Indication: Hormone receptor positive breast cancer
     Dates: start: 2020, end: 2022
  11. ZOLEDRONIC ACID [Suspect]
     Active Substance: ZOLEDRONIC ACID
     Indication: Intraductal proliferative breast lesion
     Dates: start: 2020, end: 2022
  12. EVEROLIMUS [Suspect]
     Active Substance: EVEROLIMUS
     Indication: Intraductal proliferative breast lesion
     Dates: start: 202206, end: 2022
  13. EVEROLIMUS [Suspect]
     Active Substance: EVEROLIMUS
     Indication: Hormone receptor positive breast cancer
     Dates: start: 202206, end: 2022
  14. EXEMESTANE [Concomitant]
     Active Substance: EXEMESTANE
     Indication: Hormone receptor positive breast cancer
     Dates: end: 2022
  15. ZOLEDRONIC ACID [Suspect]
     Active Substance: ZOLEDRONIC ACID
     Indication: Malignant neoplasm progression
     Dates: start: 2020, end: 2022
  16. EVEROLIMUS [Suspect]
     Active Substance: EVEROLIMUS
     Indication: Malignant neoplasm progression
     Dates: start: 202206, end: 2022
  17. EXEMESTANE [Concomitant]
     Active Substance: EXEMESTANE
     Indication: Intraductal proliferative breast lesion
     Dates: end: 2022

REACTIONS (4)
  - Metabolic acidosis [Recovered/Resolved]
  - Renal salt-wasting syndrome [Recovered/Resolved]
  - Renal failure [Recovered/Resolved]
  - Renal tubular necrosis [Recovered/Resolved]

NARRATIVE: CASE EVENT DATE: 20220101
